FAERS Safety Report 23521093 (Version 1)
Quarter: 2024Q1

REPORT INFORMATION
  Report Type: Other
  Country: US (occurrence: None)
  Receive Date: 20240214
  Receipt Date: 20240214
  Transmission Date: 20240409
  Serious: Yes (Other)
  Sender: FDA-Public Use
  Company Number: US-ROCHE-3509508

PATIENT
  Age: 51 Year
  Sex: Female

DRUGS (3)
  1. RITUXIMAB [Suspect]
     Active Substance: RITUXIMAB
     Indication: Lymphoma
     Route: 050
  2. METHOTREXATE [Concomitant]
     Active Substance: METHOTREXATE
     Route: 050
  3. MELPHALAN [Concomitant]
     Active Substance: MELPHALAN
     Dosage: 30 MG/0.05 ML
     Route: 050

REACTIONS (3)
  - Non-infectious endophthalmitis [Unknown]
  - Eye inflammation [Unknown]
  - Vasculitis [Unknown]
